FAERS Safety Report 19981812 (Version 1)
Quarter: 2021Q4

REPORT INFORMATION
  Report Type: Spontaneous
  Country: US (occurrence: US)
  Receive Date: 20211021
  Receipt Date: 20211021
  Transmission Date: 20220303
  Serious: Yes (Other)
  Sender: FDA-Public Use
  Company Number: US-GLAXOSMITHKLINE-US2021GSK217134

PATIENT
  Sex: Female

DRUGS (12)
  1. ZANTAC [Suspect]
     Active Substance: RANITIDINE HYDROCHLORIDE
     Indication: Dyspepsia
     Dosage: UNK, WE
     Route: 065
     Dates: start: 201301, end: 201610
  2. ZANTAC [Suspect]
     Active Substance: RANITIDINE HYDROCHLORIDE
     Dosage: UNK, 4 TIMES A WEEK
     Route: 065
     Dates: start: 201301, end: 201610
  3. ZANTAC [Suspect]
     Active Substance: RANITIDINE HYDROCHLORIDE
     Indication: Dyspepsia
     Dosage: UNK, WE
     Route: 065
     Dates: start: 201301, end: 201610
  4. ZANTAC [Suspect]
     Active Substance: RANITIDINE HYDROCHLORIDE
     Dosage: UNK, 4 TIMES A WEEK
     Route: 065
     Dates: start: 201301, end: 201610
  5. ZANTAC [Suspect]
     Active Substance: RANITIDINE HYDROCHLORIDE
     Indication: Dyspepsia
     Dosage: UNK, WE
     Route: 065
     Dates: start: 201301, end: 201610
  6. ZANTAC [Suspect]
     Active Substance: RANITIDINE HYDROCHLORIDE
     Dosage: UNK, 4 TIMES A WEEK
     Route: 065
     Dates: start: 201301, end: 201610
  7. RANITIDINE [Suspect]
     Active Substance: RANITIDINE
     Indication: Dyspepsia
     Dosage: 150 MG, QD
     Route: 065
     Dates: start: 201301, end: 201610
  8. RANITIDINE [Suspect]
     Active Substance: RANITIDINE
     Dosage: UNK, WE
     Route: 065
     Dates: start: 201301, end: 201610
  9. RANITIDINE [Suspect]
     Active Substance: RANITIDINE
     Dosage: UNK, 4 TIMES A WEEK
     Route: 065
     Dates: start: 201301, end: 201610
  10. RANITIDINE [Suspect]
     Active Substance: RANITIDINE
     Indication: Dyspepsia
     Dosage: 150 MG, QD
     Route: 065
     Dates: start: 201301, end: 201610
  11. RANITIDINE [Suspect]
     Active Substance: RANITIDINE
     Indication: Dyspepsia
     Dosage: 150 MG, QD
     Route: 065
     Dates: start: 201301, end: 201610
  12. RANITIDINE [Suspect]
     Active Substance: RANITIDINE
     Indication: Dyspepsia
     Dosage: 150 MG, QD
     Route: 065
     Dates: start: 201301, end: 201610

REACTIONS (1)
  - Gastric cancer [Unknown]
